FAERS Safety Report 15624318 (Version 1)
Quarter: 2018Q4

REPORT INFORMATION
  Report Type: Spontaneous
  Country: PL (occurrence: PL)
  Receive Date: 20181116
  Receipt Date: 20181116
  Transmission Date: 20190205
  Serious: Yes (Other)
  Sender: FDA-Public Use
  Company Number: PL-PFIZER INC-2018463121

PATIENT
  Age: 82 Year
  Sex: Female

DRUGS (2)
  1. TRANSTEC [Concomitant]
     Active Substance: BUPRENORPHINE
  2. LYRICA [Suspect]
     Active Substance: PREGABALIN
     Indication: NEURALGIA
     Dosage: 75 MG, 2X/DAY

REACTIONS (4)
  - Stupor [Recovered/Resolved]
  - Dementia [Recovered/Resolved]
  - Bedridden [Unknown]
  - Gait disturbance [Unknown]
